FAERS Safety Report 21822718 (Version 1)
Quarter: 2023Q1

REPORT INFORMATION
  Report Type: Spontaneous
  Country: ES (occurrence: ES)
  Receive Date: 20230105
  Receipt Date: 20230105
  Transmission Date: 20230418
  Serious: Yes (Hospitalization)
  Sender: FDA-Public Use
  Company Number: ES-AEMPS-1311014

PATIENT
  Age: 82 Year
  Sex: Male

DRUGS (10)
  1. QUETIAPINE [Suspect]
     Active Substance: QUETIAPINE
     Indication: Psychomotor hyperactivity
     Dosage: 100 MILLIGRAM, ONCE A DAY
     Route: 048
     Dates: start: 20220621, end: 20220727
  2. ASPIRIN [Concomitant]
     Active Substance: ASPIRIN
     Indication: Senile dementia
     Dosage: 100 MILLIGRAM (100.0 MG CO)
     Route: 048
     Dates: start: 20220601
  3. ALPHAGAN P [Concomitant]
     Active Substance: BRIMONIDINE TARTRATE
     Indication: Glaucoma
     Dosage: 2 GTT DROPS, TWO TIMES A DAY
     Dates: start: 20110429
  4. BISOPROLOL KERN [Concomitant]
     Indication: Hypertension
     Dosage: 2.5 MILLIGRAM (2.5, DE)
     Route: 048
     Dates: start: 20220601
  5. ACETAMINOPHEN [Concomitant]
     Active Substance: ACETAMINOPHEN
     Indication: Spinal osteoarthritis
     Dosage: 1 GRAM, 3 TIMES A DAY (1.0 G C/8 HORAS )
     Route: 048
     Dates: start: 20110429
  6. LANTUS SOLOSTAR [Concomitant]
     Active Substance: INSULIN GLARGINE
     Indication: Diabetes mellitus
     Dosage: 44 UI, ONCE A DAY (44.0 UI C/24 H (18))
     Route: 058
     Dates: start: 20120504
  7. LOSARTAN [Concomitant]
     Active Substance: LOSARTAN
     Indication: Senile dementia
     Dosage: 50 MILLIGRAM (50.0 MG DE)
     Route: 048
     Dates: start: 20220601
  8. NOVORAPID [Concomitant]
     Active Substance: INSULIN ASPART
     Indication: Diabetes mellitus
     Dosage: 45 UI, ONCE A DAY (45.0 UI C/24 H)
     Route: 058
     Dates: start: 20110429
  9. RISPERIDONA ARISTO [Concomitant]
     Indication: Senile dementia
     Dosage: 1 MILLIGRAM (1.0 MG DECO)
     Route: 048
     Dates: start: 20220531
  10. TAMSULOSIN HYDROCHLORIDE [Concomitant]
     Active Substance: TAMSULOSIN HYDROCHLORIDE
     Indication: Oedema
     Dosage: 0.4 MILLIGRAM, ONCE A DAY (0.4 MG C/24 H)
     Route: 048
     Dates: start: 20220601

REACTIONS (2)
  - Pyrexia [Recovered/Resolved]
  - Cognitive disorder [Recovered/Resolved]

NARRATIVE: CASE EVENT DATE: 20220724
